FAERS Safety Report 8000280-X (Version None)
Quarter: 2011Q4

REPORT INFORMATION
  Report Type: 
  Country: None (occurrence: None)
  Receive Date: 20111216
  Receipt Date: 20111209
  Transmission Date: 20120403
  Serious: Yes (Other)
  Sender: FDA-Public Use
  Company Number: 2011MA017612

PATIENT
  Sex: Female

DRUGS (3)
  1. BETNOVATE [Concomitant]
  2. FLUOXETINE [Suspect]
     Dosage: 3 MG;QD;PO
     Route: 048
  3. VESICARE [Suspect]
     Dosage: 5 MG;QD
     Dates: start: 20100201

REACTIONS (2)
  - DRY SKIN [None]
  - URTICARIA [None]
